FAERS Safety Report 24148926 (Version 4)
Quarter: 2025Q3

REPORT INFORMATION
  Report Type: Report from Study
  Country: EU (occurrence: EU)
  Receive Date: 20240729
  Receipt Date: 20250929
  Transmission Date: 20251021
  Serious: Yes (Hospitalization)
  Sender: NOVARTIS
  Company Number: EU-002147023-NVSC2024AT122287

PATIENT
  Sex: Male

DRUGS (11)
  1. KESIMPTA [Suspect]
     Active Substance: OFATUMUMAB
     Indication: Multiple sclerosis
     Route: 058
     Dates: start: 20240530
  2. ATORVASTATIN [Concomitant]
     Active Substance: ATORVASTATIN
     Indication: Hypercholesterolaemia
     Route: 048
     Dates: start: 20230407
  3. Oleovit [Concomitant]
     Indication: Vitamin D deficiency
     Route: 048
     Dates: start: 202304
  4. SYMBICORT [Concomitant]
     Active Substance: BUDESONIDE\FORMOTEROL FUMARATE DIHYDRATE
     Indication: Asthma
     Route: 055
     Dates: start: 202304
  5. AZITHROMYCIN [Concomitant]
     Active Substance: AZITHROMYCIN
     Indication: Pneumonia
     Route: 048
     Dates: start: 20240610, end: 20240612
  6. UNASYN [Concomitant]
     Active Substance: AMPICILLIN SODIUM\SULBACTAM SODIUM
     Indication: Pneumonia
     Route: 042
     Dates: start: 20240608, end: 20240610
  7. AMOXICILLIN\CLAVULANATE POTASSIUM [Concomitant]
     Active Substance: AMOXICILLIN\CLAVULANATE POTASSIUM
     Indication: Pneumonia
     Route: 048
     Dates: start: 20240610, end: 20240616
  8. TAZOBACTAM [Concomitant]
     Active Substance: TAZOBACTAM
     Indication: Pneumonia
     Route: 042
     Dates: start: 20240610, end: 20240611
  9. PIPERACILLIN [Concomitant]
     Active Substance: PIPERACILLIN
     Indication: Pneumonia
     Route: 042
     Dates: start: 20240610, end: 20240611
  10. ACETAMINOPHEN [Concomitant]
     Active Substance: ACETAMINOPHEN
     Indication: Pneumonia
     Route: 042
     Dates: start: 20240608, end: 20240608
  11. Elomel [Concomitant]
     Indication: Pneumonia
     Route: 042
     Dates: start: 20240608, end: 20240611

REACTIONS (1)
  - Pneumonia pneumococcal [Recovered/Resolved]

NARRATIVE: CASE EVENT DATE: 20240608
